FAERS Safety Report 6765075-3 (Version None)
Quarter: 2010Q2

REPORT INFORMATION
  Report Type: 
  Country: None (occurrence: None)
  Receive Date: 20100609
  Receipt Date: 20100609
  Transmission Date: 20101027
  Serious: Yes (Hospitalization)
  Sender: FDA-Public Use
  Company Number: None

PATIENT
  Sex: Male
  Weight: 76.4 kg

DRUGS (1)
  1. GLEEVEC [Suspect]
     Dosage: 400 MG
     Dates: end: 20100310

REACTIONS (2)
  - RENAL FAILURE [None]
  - THROMBOTIC MICROANGIOPATHY [None]
